FAERS Safety Report 10947417 (Version 1)
Quarter: 2015Q1

REPORT INFORMATION
  Report Type: Spontaneous
  Country: BR (occurrence: BR)
  Receive Date: 20150323
  Receipt Date: 20150323
  Transmission Date: 20150721
  Serious: Yes (Hospitalization)
  Sender: FDA-Public Use
  Company Number: BR-B.I. PHARMACEUTICALS,INC./RIDGEFIELD-2015-BI-14483BR

PATIENT
  Age: 53 Year
  Sex: Female
  Weight: 54 kg

DRUGS (3)
  1. OSCAL [Concomitant]
     Active Substance: CALCIUM CARBONATE
     Indication: VITAMIN SUPPLEMENTATION
     Route: 048
     Dates: start: 201502
  2. TRADJENTA [Suspect]
     Active Substance: LINAGLIPTIN
     Indication: DIABETES MELLITUS
     Dosage: 2.5 MG
     Route: 048
     Dates: start: 201501
  3. CALCIFEROL [Concomitant]
     Active Substance: ERGOCALCIFEROL
     Indication: VITAMIN SUPPLEMENTATION
     Dosage: 2000 MG
     Route: 048
     Dates: start: 201502

REACTIONS (4)
  - Cheilitis [Not Recovered/Not Resolved]
  - Hypoaesthesia oral [Unknown]
  - Product tampering [Not Recovered/Not Resolved]
  - Gastrointestinal infection [Not Recovered/Not Resolved]

NARRATIVE: CASE EVENT DATE: 201501
